FAERS Safety Report 7753646-7 (Version None)
Quarter: 2011Q3

REPORT INFORMATION
  Report Type: 
  Country: None (occurrence: None)
  Receive Date: 20110915
  Receipt Date: 20110812
  Transmission Date: 20111222
  Serious: Yes (Disabling)
  Sender: FDA-Public Use
  Company Number: DE-GLAXOSMITHKLINE-D0072382A

PATIENT
  Sex: Female

DRUGS (1)
  1. LAPATINIB [Suspect]
     Dosage: 1500MG PER DAY
     Route: 048

REACTIONS (4)
  - MONOPARESIS [None]
  - PAIN IN EXTREMITY [None]
  - ROTATOR CUFF SYNDROME [None]
  - MYALGIA [None]
